FAERS Safety Report 11403473 (Version 2)
Quarter: 2015Q3

REPORT INFORMATION
  Report Type: Spontaneous
  Country: US (occurrence: US)
  Receive Date: 20150821
  Receipt Date: 20150901
  Transmission Date: 20151125
  Serious: Yes (Hospitalization)
  Sender: FDA-Public Use
  Company Number: US-WEST-WARD PHARMACEUTICALS CORP.-US-H14001-15-01596

PATIENT
  Age: 76 Year
  Sex: Female
  Weight: 38.59 kg

DRUGS (6)
  1. ETHAMBUTOL [Concomitant]
     Active Substance: ETHAMBUTOL HYDROCHLORIDE
     Indication: ANTIBIOTIC THERAPY
     Route: 048
     Dates: start: 20141110, end: 20141118
  2. PYRAZINAMIDE. [Concomitant]
     Active Substance: PYRAZINAMIDE
     Indication: ANTIBIOTIC THERAPY
     Route: 048
     Dates: start: 20141110, end: 20141118
  3. ISONIAZID. [Suspect]
     Active Substance: ISONIAZID
     Indication: ANTIBIOTIC THERAPY
     Route: 048
     Dates: start: 20141110, end: 20141118
  4. RIFAMPIN. [Concomitant]
     Active Substance: RIFAMPIN
     Indication: ANTIBIOTIC THERAPY
     Route: 048
     Dates: start: 20141110, end: 20141118
  5. OXYGEN. [Concomitant]
     Active Substance: OXYGEN
     Indication: CHRONIC OBSTRUCTIVE PULMONARY DISEASE
     Route: 065
  6. PYRIDOXINE [Concomitant]
     Active Substance: PYRIDOXINE
     Indication: ANTIBIOTIC THERAPY
     Route: 048
     Dates: start: 20141110, end: 20141118

REACTIONS (4)
  - Abdominal pain [Recovered/Resolved]
  - Transaminases increased [Recovered/Resolved]
  - Vomiting [Recovered/Resolved]
  - Drug-induced liver injury [Recovered/Resolved]

NARRATIVE: CASE EVENT DATE: 20141111
